FAERS Safety Report 25617811 (Version 1)
Quarter: 2025Q3

REPORT INFORMATION
  Report Type: Spontaneous
  Country: US (occurrence: None)
  Receive Date: 20250729
  Receipt Date: 20250729
  Transmission Date: 20251021
  Serious: Yes (Death)
  Sender: FDA-CTU
  Company Number: None

PATIENT
  Age: 62 Year
  Sex: Male
  Weight: 88 kg

DRUGS (1)
  1. CISPLATIN [Suspect]
     Active Substance: CISPLATIN
     Dates: start: 20130812, end: 20130903

REACTIONS (9)
  - Oxygen saturation decreased [None]
  - Aspiration [None]
  - Pulse absent [None]
  - Pneumothorax [None]
  - Device kink [None]
  - Pneumomediastinum [None]
  - Pneumoperitoneum [None]
  - Pneumoretroperitoneum [None]
  - Aspiration [None]

NARRATIVE: CASE EVENT DATE: 20250711
